FAERS Safety Report 10358551 (Version 5)
Quarter: 2015Q1

REPORT INFORMATION
  Report Type: Report from Study
  Country: GB (occurrence: GB)
  Receive Date: 20140803
  Receipt Date: 20150310
  Transmission Date: 20150720
  Serious: Yes (Hospitalization)
  Sender: FDA-Public Use
  Company Number: GB-009507513-1407GBR012666

PATIENT
  Age: 53 Year
  Sex: Male

DRUGS (6)
  1. LENALIDOMIDE [Suspect]
     Active Substance: LENALIDOMIDE
     Dosage: 10 MG, CYCLICAL, DAY 1-21
     Route: 048
     Dates: start: 20140717, end: 20140723
  2. VORINOSTAT [Suspect]
     Active Substance: VORINOSTAT
     Indication: PLASMA CELL MYELOMA
     Dosage: 200 MG, CYCLICAL, DAY 1-7, 15-21
     Route: 048
     Dates: start: 20140223, end: 2014
  3. LENALIDOMIDE [Suspect]
     Active Substance: LENALIDOMIDE
     Indication: PLASMA CELL MYELOMA
     Dosage: 5 MG, CYCLICAL, DAY 1-21
     Route: 048
     Dates: start: 20140227, end: 2014
  4. LENALIDOMIDE [Suspect]
     Active Substance: LENALIDOMIDE
     Dosage: 5 MG, CYCLICAL, DAY 1-21
     Route: 048
     Dates: start: 2014, end: 20141227
  5. VORINOSTAT [Suspect]
     Active Substance: VORINOSTAT
     Dosage: 200 MG, CYCLICAL, DAY 1-7, 15-21
     Route: 048
     Dates: start: 2014, end: 20141225
  6. VORINOSTAT [Suspect]
     Active Substance: VORINOSTAT
     Dosage: 300 MG, CYCLICAL, DAY 1-7, 15-21
     Route: 048
     Dates: start: 20140717, end: 20140723

REACTIONS (2)
  - Febrile neutropenia [Recovered/Resolved]
  - Upper respiratory tract infection [Recovered/Resolved]

NARRATIVE: CASE EVENT DATE: 20140720
